FAERS Safety Report 8171928-4 (Version None)
Quarter: 2012Q1

REPORT INFORMATION
  Report Type: 
  Country: None (occurrence: None)
  Receive Date: 20120228
  Receipt Date: 20120217
  Transmission Date: 20120608
  Serious: Yes (Hospitalization)
  Sender: FDA-Public Use
  Company Number: US-PERRIGO-12US001462

PATIENT
  Sex: Male
  Weight: 95.238 kg

DRUGS (1)
  1. DAYTIME PE ORIG LIQ 656 [Suspect]
     Indication: NASOPHARYNGITIS
     Dosage: 20 ML, SINGLE
     Route: 048
     Dates: start: 20111104, end: 20111104

REACTIONS (6)
  - DIZZINESS [None]
  - BLOOD CHOLESTEROL INCREASED [None]
  - CEREBROVASCULAR ACCIDENT [None]
  - UNDERDOSE [None]
  - DIABETES MELLITUS [None]
  - DIPLOPIA [None]
